FAERS Safety Report 7048672-X (Version None)
Quarter: 2010Q4

REPORT INFORMATION
  Report Type: 
  Country: None (occurrence: None)
  Receive Date: 20101018
  Receipt Date: 20101005
  Transmission Date: 20110411
  Serious: Yes (Other)
  Sender: FDA-Public Use
  Company Number: US-BAYER-201036832NA

PATIENT
  Age: 66 Year
  Sex: Male

DRUGS (3)
  1. LEVITRA [Suspect]
     Indication: SEXUAL DYSFUNCTION
     Route: 048
     Dates: start: 20070101, end: 20070101
  2. LEVITRA [Suspect]
     Route: 048
     Dates: start: 20090101, end: 20090101
  3. VITAMINS [Concomitant]

REACTIONS (2)
  - ABNORMAL BEHAVIOUR [None]
  - MEMORY IMPAIRMENT [None]
